FAERS Safety Report 5849183-7 (Version None)
Quarter: 2008Q3

REPORT INFORMATION
  Report Type: 
  Country: None (occurrence: None)
  Receive Date: 20080819
  Receipt Date: 20080804
  Transmission Date: 20090109
  Serious: Yes (Hospitalization)
  Sender: FDA-Public Use
  Company Number: US-ELI_LILLY_AND_COMPANY-US200807001242

PATIENT
  Sex: Female
  Weight: 88.5 kg

DRUGS (6)
  1. EXENATIDE [Suspect]
     Indication: TYPE 2 DIABETES MELLITUS
     Dosage: 10 U, 2/D
     Route: 058
     Dates: start: 20070710, end: 20080423
  2. PLACEBO [Suspect]
     Indication: TYPE 2 DIABETES MELLITUS
     Dosage: 10 UG, 2/D
     Route: 058
     Dates: start: 20070710, end: 20080423
  3. LOTREL [Concomitant]
  4. LIPITOR [Concomitant]
  5. TRIAMCINOLONE [Concomitant]
     Route: 061
  6. OMEPRAZOLE [Concomitant]

REACTIONS (5)
  - ABDOMINAL MASS [None]
  - ABDOMINAL PAIN [None]
  - CYST [None]
  - OOPHORECTOMY [None]
  - VOMITING [None]
